FAERS Safety Report 16864392 (Version 1)
Quarter: 2019Q3

REPORT INFORMATION
  Report Type: Report from Study
  Country: None (occurrence: US)
  Receive Date: 20190928
  Receipt Date: 20190928
  Transmission Date: 20191005
  Serious: Yes (Other)
  Sender: FDA-Public Use
  Company Number: US-ABBVIE-19K-163-2934142-00

PATIENT
  Sex: Female

DRUGS (8)
  1. TRUVADA [Suspect]
     Active Substance: EMTRICITABINE\TENOFOVIR DISOPROXIL FUMARATE
     Indication: HIV INFECTION
     Route: 048
     Dates: start: 20180312
  2. RITONAVIR. [Suspect]
     Active Substance: RITONAVIR
     Indication: MATERNAL EXPOSURE TIMING UNSPECIFIED
     Route: 064
  3. REYATAZ [Suspect]
     Active Substance: ATAZANAVIR SULFATE
     Dosage: COURSE TWO
     Route: 048
     Dates: start: 20190830
  4. RETROVIR [Suspect]
     Active Substance: ZIDOVUDINE
     Indication: HIV INFECTION
     Dosage: COURSE ONE
     Route: 042
     Dates: start: 20190830, end: 20190830
  5. RETROVIR [Suspect]
     Active Substance: ZIDOVUDINE
     Dosage: COURSE TWO
     Route: 042
     Dates: start: 20190901, end: 20190901
  6. REYATAZ [Suspect]
     Active Substance: ATAZANAVIR SULFATE
     Indication: HIV INFECTION
     Dosage: COURSE ONE
     Route: 048
     Dates: start: 20190429, end: 20190829
  7. RETROVIR [Suspect]
     Active Substance: ZIDOVUDINE
     Dosage: COURSE THREE
     Route: 042
     Dates: start: 20190901, end: 20190901
  8. TIVICAY [Suspect]
     Active Substance: DOLUTEGRAVIR SODIUM
     Indication: HIV INFECTION
     Dosage: COURSE ONE
     Route: 048
     Dates: start: 20180312, end: 20190429

REACTIONS (2)
  - Foetal growth restriction [Unknown]
  - Premature baby [Unknown]
